FAERS Safety Report 21776165 (Version 2)
Quarter: 2023Q1

REPORT INFORMATION
  Report Type: Spontaneous
  Country: US (occurrence: US)
  Receive Date: 20221226
  Receipt Date: 20230112
  Transmission Date: 20230417
  Serious: Yes (Death, Other)
  Sender: FDA-Public Use
  Company Number: US-BRISTOL-MYERS SQUIBB COMPANY-2022-158031

PATIENT
  Age: 62 Year
  Sex: Male
  Weight: 93.4 kg

DRUGS (1)
  1. ISTODAX [Suspect]
     Active Substance: ROMIDEPSIN
     Indication: Cutaneous T-cell lymphoma
     Dosage: DAY 1, 8 AND 15 THEN EVERY 28 DAYS
     Dates: start: 20220921, end: 20221102

REACTIONS (1)
  - Malignant neoplasm progression [Fatal]
